FAERS Safety Report 9971927 (Version 1)
Quarter: 2014Q1

REPORT INFORMATION
  Report Type: Report from Study
  Country: US (occurrence: US)
  Receive Date: 20140306
  Receipt Date: 20140306
  Transmission Date: 20141002
  Serious: No
  Sender: FDA-Public Use
  Company Number: US-ABBVIE-13P-163-1153658-00

PATIENT
  Age: 24 Year
  Sex: Male

DRUGS (3)
  1. HUMIRA [Suspect]
     Indication: CROHN^S DISEASE
     Dates: start: 20130801
  2. SINGULAIR [Concomitant]
     Indication: ASTHMA
     Dosage: 10MG DAILY
  3. ALBUTEROL [Concomitant]
     Indication: ASTHMA

REACTIONS (2)
  - Medication error [Recovered/Resolved]
  - Incorrect drug administration duration [Recovered/Resolved]
